FAERS Safety Report 5135925-5 (Version None)
Quarter: 2006Q4

REPORT INFORMATION
  Report Type: 
  Country: None (occurrence: None)
  Receive Date: 20061020
  Receipt Date: 20061009
  Transmission Date: 20070319
  Serious: Yes (Other)
  Sender: FDA-Public Use
  Company Number: 2006AP000820

PATIENT
  Age: 57 Year
  Sex: Female

DRUGS (3)
  1. PAROXETINE HYDROCHLORIDE [Suspect]
     Dosage: 20 MG; QD PO
     Route: 048
     Dates: start: 20060726, end: 20060823
  2. ERYTHROMYCIN ETHYLSUCCINATE [Suspect]
     Indication: SINUSITIS
     Dosage: 500 MG; QID PO
     Route: 048
     Dates: start: 20060904, end: 20060905
  3. TRAMADOL HCL [Concomitant]

REACTIONS (7)
  - DELIRIUM [None]
  - DISORIENTATION [None]
  - DRUG INTERACTION [None]
  - HALLUCINATION [None]
  - HYPERHIDROSIS [None]
  - PYREXIA [None]
  - SINUSITIS [None]
